FAERS Safety Report 4990903-1 (Version None)
Quarter: 2006Q2

REPORT INFORMATION
  Report Type: 
  Country: None (occurrence: None)
  Receive Date: 20060428
  Receipt Date: 20060410
  Transmission Date: 20061013
  Serious: Yes (Hospitalization)
  Sender: FDA-Public Use
  Company Number: 2006-00370

PATIENT
  Age: 48 Year
  Sex: Male
  Weight: 90 kg

DRUGS (4)
  1. VELCADE [Suspect]
     Indication: MULTIPLE MYELOMA
     Dosage: 1.30 MG/M2, INTRAVENOUS
     Route: 042
     Dates: start: 20050601
  2. LETROX (LEVOTHYROXINE SODIUM) [Concomitant]
  3. ZOFRAN [Concomitant]
  4. PYRIDOXINE (PYRIDOXINE) [Concomitant]

REACTIONS (6)
  - DEPRESSION [None]
  - NAUSEA [None]
  - NYSTAGMUS [None]
  - SUICIDAL IDEATION [None]
  - VERTIGO [None]
  - VOMITING [None]
